FAERS Safety Report 6574253-8 (Version None)
Quarter: 2010Q1

REPORT INFORMATION
  Report Type: 
  Country: None (occurrence: None)
  Receive Date: 20100201
  Receipt Date: 20100118
  Transmission Date: 20100710
  Serious: Yes (Death, Life-Threatening, Hospitalization)
  Sender: FDA-Public Use
  Company Number: CLOF-10719

PATIENT
  Age: 13 Year
  Sex: Female
  Weight: 37 kg

DRUGS (7)
  1. CLOFARABINE (CLOFARABINE) [Suspect]
     Indication: ACUTE LYMPHOCYTIC LEUKAEMIA
     Dosage: 48 MG, QD, INTRAVENOUS
     Route: 042
     Dates: start: 20071012, end: 20071016
  2. ETOPOSIDE [Suspect]
     Indication: ACUTE LYMPHOCYTIC LEUKAEMIA
     Dosage: 136 MG, QD, INTRAVENOUS
     Route: 042
     Dates: start: 20071012, end: 20071016
  3. CYCLOPHOSPHAMIDE [Suspect]
     Indication: ACUTE LYMPHOCYTIC LEUKAEMIA
     Dosage: 525 MG, QD, INTRAVENOUS
     Route: 042
     Dates: start: 20071012, end: 20071016
  4. EPINEPHRINE [Concomitant]
  5. FLAGYL [Concomitant]
  6. VANCOMYCIN [Concomitant]
  7. GANCICLOVIR [Concomitant]

REACTIONS (43)
  - ABDOMINAL DISTENSION [None]
  - ALANINE AMINOTRANSFERASE INCREASED [None]
  - ALPHA HAEMOLYTIC STREPTOCOCCAL INFECTION [None]
  - ASCITES [None]
  - BLOOD BILIRUBIN INCREASED [None]
  - BONE MARROW FAILURE [None]
  - BRONCHOPULMONARY ASPERGILLOSIS [None]
  - CAPILLARY LEAK SYNDROME [None]
  - CARDIAC ARREST [None]
  - CARDIO-RESPIRATORY ARREST [None]
  - CHOLELITHIASIS [None]
  - COAGULOPATHY [None]
  - CONTINUOUS HAEMODIAFILTRATION [None]
  - EMBOLISM [None]
  - FEBRILE NEUTROPENIA [None]
  - GALLBLADDER DISORDER [None]
  - GAMMA-GLUTAMYLTRANSFERASE INCREASED [None]
  - HAEMATOCRIT DECREASED [None]
  - HAEMODIALYSIS [None]
  - HAEMOGLOBIN DECREASED [None]
  - HEPATOMEGALY [None]
  - HYPERTENSION [None]
  - HYPOPHAGIA [None]
  - INCOHERENT [None]
  - LEFT VENTRICULAR HYPERTROPHY [None]
  - LIPASE INCREASED [None]
  - LIVER FUNCTION TEST ABNORMAL [None]
  - MULTI-ORGAN FAILURE [None]
  - NAUSEA [None]
  - ORO-PHARYNGEAL ASPERGILLOSIS [None]
  - PELVIC FLUID COLLECTION [None]
  - PLATELET COUNT DECREASED [None]
  - PLEURAL EFFUSION [None]
  - PULMONARY OEDEMA [None]
  - RENAL FAILURE [None]
  - RENAL FAILURE ACUTE [None]
  - RESPIRATORY TRACT INFECTION VIRAL [None]
  - RIGHT VENTRICULAR HYPERTROPHY [None]
  - SEPTIC SHOCK [None]
  - VENOOCCLUSIVE LIVER DISEASE [None]
  - VOMITING [None]
  - WEIGHT INCREASED [None]
  - WHITE BLOOD CELL COUNT DECREASED [None]
